FAERS Safety Report 9933657 (Version 2)
Quarter: 2014Q1

REPORT INFORMATION
  Report Type: Report from Study
  Country: US (occurrence: US)
  Receive Date: 20140228
  Receipt Date: 20140228
  Transmission Date: 20141002
  Serious: No
  Sender: FDA-Public Use
  Company Number: US-MYLANLABS-2013S1028211

PATIENT
  Sex: Male
  Weight: 52.39 kg

DRUGS (1)
  1. AMNESTEEM CAPSULES [Suspect]
     Indication: ACNE
     Route: 048
     Dates: start: 20131114, end: 20131212

REACTIONS (3)
  - Depression [Recovered/Resolved]
  - Mood swings [Recovered/Resolved]
  - Personality change [Recovered/Resolved]
